FAERS Safety Report 25946840 (Version 1)
Quarter: 2025Q4

REPORT INFORMATION
  Report Type: Other
  Country: US (occurrence: US)
  Receive Date: 20251022
  Receipt Date: 20251022
  Transmission Date: 20260117
  Serious: Yes (Other)
  Sender: DEXCEL LTD.
  Company Number: US-DEXPHARM-2025-4842

PATIENT
  Age: 45 Year
  Sex: Female

DRUGS (4)
  1. PANTOPRAZOLE [Suspect]
     Active Substance: PANTOPRAZOLE
     Indication: Helicobacter infection
  2. MOXIFLOXACIN HYDROCHLORIDE [Suspect]
     Active Substance: MOXIFLOXACIN HYDROCHLORIDE
     Indication: Helicobacter infection
  3. RIFABUTIN [Suspect]
     Active Substance: RIFABUTIN
     Indication: Helicobacter infection
  4. ACETAMINOPHEN [Concomitant]
     Active Substance: ACETAMINOPHEN

REACTIONS (1)
  - Neutropenia [Recovered/Resolved]
